FAERS Safety Report 7315034-7 (Version None)
Quarter: 2011Q1

REPORT INFORMATION
  Report Type: 
  Country: None (occurrence: None)
  Receive Date: 20110225
  Receipt Date: 20100317
  Transmission Date: 20110831
  Serious: No
  Sender: FDA-Public Use
  Company Number: US-MYLANLABS-2010S1004533

PATIENT
  Age: 17 Year
  Sex: Female

DRUGS (4)
  1. AMNESTEEM [Suspect]
     Indication: ACNE CYSTIC
     Route: 048
     Dates: start: 20091201, end: 20100125
  2. CLARAVIS [Suspect]
     Route: 048
  3. YAZ /01502501/ [Concomitant]
     Indication: CONTRACEPTION
     Route: 048
  4. CLARAVIS [Suspect]
     Indication: ACNE CYSTIC
     Route: 048
     Dates: start: 20090901, end: 20091201

REACTIONS (1)
  - BLOOD TRIGLYCERIDES INCREASED [None]
